FAERS Safety Report 9144986 (Version 2)
Quarter: 2013Q2

REPORT INFORMATION
  Report Type: Spontaneous
  Country: US (occurrence: US)
  Receive Date: 20130307
  Receipt Date: 20130402
  Transmission Date: 20140414
  Serious: No
  Sender: FDA-Public Use
  Company Number: US-BIOGENIDEC-2013BI019033

PATIENT
  Age: 34 Year
  Sex: Female

DRUGS (2)
  1. TYSABRI [Suspect]
     Indication: MULTIPLE SCLEROSIS
     Route: 042
     Dates: start: 20080604, end: 20090616
  2. TYSABRI [Suspect]
     Indication: MULTIPLE SCLEROSIS
     Route: 042
     Dates: start: 20110822, end: 20130218

REACTIONS (6)
  - Anxiety [Unknown]
  - Dizziness [Not Recovered/Not Resolved]
  - Infusion related reaction [Recovered/Resolved]
  - Chest discomfort [Unknown]
  - Adverse drug reaction [Unknown]
  - Hypersensitivity [Recovered/Resolved]
